FAERS Safety Report 10882197 (Version 1)
Quarter: 2015Q1

REPORT INFORMATION
  Report Type: Spontaneous
  Country: US (occurrence: US)
  Receive Date: 20150303
  Receipt Date: 20150303
  Transmission Date: 20150721
  Serious: Yes (Hospitalization, Other)
  Sender: FDA-Public Use
  Company Number: US-ROXANE LABORATORIES, INC.-2015-RO-00347RO

PATIENT
  Age: 12 Year
  Sex: Female

DRUGS (3)
  1. GUANFACINE. [Concomitant]
     Active Substance: GUANFACINE
     Indication: BIPOLAR DISORDER
     Route: 065
  2. QUETIAPINE [Concomitant]
     Active Substance: QUETIAPINE
     Indication: BIPOLAR DISORDER
     Route: 065
  3. LITHIUM CARBONATE. [Suspect]
     Active Substance: LITHIUM CARBONATE
     Indication: BIPOLAR DISORDER
     Route: 065

REACTIONS (3)
  - Acute kidney injury [Recovered/Resolved]
  - Post infection glomerulonephritis [Recovered/Resolved]
  - Toxicity to various agents [Recovered/Resolved]
